FAERS Safety Report 7384581-4 (Version None)
Quarter: 2011Q1

REPORT INFORMATION
  Report Type: 
  Country: None (occurrence: None)
  Receive Date: 20110330
  Receipt Date: 20110316
  Transmission Date: 20110831
  Serious: Yes (Hospitalization)
  Sender: FDA-Public Use
  Company Number: US-MYLANLABS-2011S1005759

PATIENT
  Age: 18 Month
  Sex: Male
  Weight: 11 kg

DRUGS (2)
  1. FLUOXETINE 10 MG TABLETS [Suspect]
     Indication: ACCIDENTAL OVERDOSE
     Dosage: 2 X 10MG TABLETS TWICE DAILY
     Route: 065
  2. OMEPRAZOLE [Concomitant]
     Indication: GASTROOESOPHAGEAL REFLUX DISEASE
     Route: 065

REACTIONS (15)
  - IRRITABILITY [None]
  - DYSURIA [None]
  - ACCIDENTAL OVERDOSE [None]
  - PALLOR [None]
  - FREQUENT BOWEL MOVEMENTS [None]
  - DYSPNOEA [None]
  - RASH [None]
  - DERMATITIS DIAPER [None]
  - HYPERHIDROSIS [None]
  - EXCORIATION [None]
  - DRUG DISPENSING ERROR [None]
  - FLATULENCE [None]
  - WEIGHT DECREASED [None]
  - DRUG WITHDRAWAL SYNDROME [None]
  - TACHYCARDIA [None]
